FAERS Safety Report 11876754 (Version 4)
Quarter: 2016Q3

REPORT INFORMATION
  Report Type: Spontaneous
  Country: US (occurrence: US)
  Receive Date: 20151229
  Receipt Date: 20160810
  Transmission Date: 20161109
  Serious: Yes (Other)
  Sender: FDA-Public Use
  Company Number: US-009507513-1512USA013125

PATIENT
  Sex: Male
  Weight: 93.88 kg

DRUGS (2)
  1. PROPECIA [Suspect]
     Active Substance: FINASTERIDE
     Indication: ALOPECIA
  2. PROPECIA [Suspect]
     Active Substance: FINASTERIDE
     Indication: ANDROGENETIC ALOPECIA
     Dosage: 1 MG, QD
     Route: 048
     Dates: start: 2002, end: 2007

REACTIONS (11)
  - Arrhythmia [Unknown]
  - Abdominal pain lower [Unknown]
  - Erectile dysfunction [Not Recovered/Not Resolved]
  - Vasectomy [Unknown]
  - Diverticulitis [Unknown]
  - Sexual dysfunction [Not Recovered/Not Resolved]
  - Cognitive disorder [Not Recovered/Not Resolved]
  - Fatigue [Unknown]
  - Loss of libido [Not Recovered/Not Resolved]
  - Drug administration error [Unknown]
  - Acne [Unknown]

NARRATIVE: CASE EVENT DATE: 2002
